FAERS Safety Report 8482984-8 (Version None)
Quarter: 2012Q3

REPORT INFORMATION
  Report Type: 
  Country: None (occurrence: None)
  Receive Date: 20120702
  Receipt Date: 20120626
  Transmission Date: 20120928
  Serious: Yes (Hospitalization)
  Sender: FDA-Public Use
  Company Number: US-AMGEN-USASP2012040060

PATIENT
  Sex: Female

DRUGS (1)
  1. SENSIPAR [Suspect]
     Indication: HYPERPARATHYROIDISM SECONDARY
     Dosage: 30 MG, QD

REACTIONS (3)
  - BLOOD PARATHYROID HORMONE ABNORMAL [None]
  - ANGIOEDEMA [None]
  - ENDOTRACHEAL INTUBATION [None]
